FAERS Safety Report 24828627 (Version 3)
Quarter: 2025Q1

REPORT INFORMATION
  Report Type: Spontaneous
  Country: BR (occurrence: BR)
  Receive Date: 20250110
  Receipt Date: 20250124
  Transmission Date: 20250409
  Serious: Yes (Other)
  Sender: DR REDDYS
  Company Number: BR-Dr. Reddys Brasil-BRA/2025/01/000345

PATIENT
  Age: 42 Year
  Sex: Female
  Weight: 76 kg

DRUGS (1)
  1. FULVESTRANT [Suspect]
     Active Substance: FULVESTRANT
     Indication: Breast cancer
     Dosage: 250 MG
     Route: 030

REACTIONS (2)
  - Injection site necrosis [Recovering/Resolving]
  - Injection site nodule [Recovering/Resolving]

NARRATIVE: CASE EVENT DATE: 20241129
